FAERS Safety Report 5107718-6 (Version None)
Quarter: 2006Q3

REPORT INFORMATION
  Report Type: 
  Country: None (occurrence: None)
  Receive Date: 20060919
  Receipt Date: 20060824
  Transmission Date: 20061208
  Serious: Yes (Hospitalization, Other)
  Sender: FDA-Public Use
  Company Number: FR-ABBOTT-06P-056-0341718-00

PATIENT
  Age: 53 Year
  Sex: Male
  Weight: 94 kg

DRUGS (6)
  1. TARKA [Suspect]
     Indication: SECONDARY HYPERTENSION
     Route: 048
  2. BISOPROLOL FUMARATE AND HYDROCHLOROTHIAZIDE [Suspect]
     Indication: SECONDARY HYPERTENSION
     Route: 048
  3. AMLODIPINE [Concomitant]
     Indication: DRUG USE FOR UNKNOWN INDICATION
  4. BISOPROLOL FUMARATE [Concomitant]
     Indication: DRUG USE FOR UNKNOWN INDICATION
  5. BROMAZEPAM [Concomitant]
     Indication: DRUG USE FOR UNKNOWN INDICATION
  6. OMEPRAZOLE [Concomitant]
     Indication: DRUG USE FOR UNKNOWN INDICATION
     Route: 048

REACTIONS (5)
  - AORTIC ANEURYSM [None]
  - ASTHENIA [None]
  - ATRIAL FLUTTER [None]
  - DYSPNOEA [None]
  - RIGHT VENTRICULAR FAILURE [None]
